FAERS Safety Report 14801513 (Version 6)
Quarter: 2018Q3

REPORT INFORMATION
  Report Type: Report from Study
  Country: GB (occurrence: GB)
  Receive Date: 20180424
  Receipt Date: 20180709
  Transmission Date: 20181010
  Serious: Yes (Other)
  Sender: FDA-Public Use
  Company Number: PHHO2018GB005019

PATIENT
  Age: 61 Year
  Sex: Male
  Weight: 126 kg

DRUGS (2)
  1. ACZ885 [Suspect]
     Active Substance: CANAKINUMAB
     Indication: CARDIOVASCULAR EVENT PROPHYLAXIS
     Dosage: 50 MG, UNK
     Route: 058
     Dates: start: 20170109, end: 20170111
  2. ACZ885 [Suspect]
     Active Substance: CANAKINUMAB
     Dosage: 50 MG, UNK
     Route: 058
     Dates: start: 20180518

REACTIONS (1)
  - Lower respiratory tract infection [Recovered/Resolved]

NARRATIVE: CASE EVENT DATE: 20180430
